FAERS Safety Report 9319767 (Version 3)
Quarter: 2013Q4

REPORT INFORMATION
  Report Type: Spontaneous
  Country: GB (occurrence: GB)
  Receive Date: 20130530
  Receipt Date: 20131101
  Transmission Date: 20140711
  Serious: Yes (Disabling)
  Sender: FDA-Public Use
  Company Number: GB-GLAXOSMITHKLINE-B0890694A

PATIENT
  Age: 30 Year
  Sex: Female

DRUGS (1)
  1. DUAC ONCE DAILY GEL [Suspect]
     Indication: ACNE
     Dosage: 1IUAX PER DAY
     Route: 061
     Dates: start: 2012, end: 20130509

REACTIONS (4)
  - Erythema [Recovered/Resolved]
  - Application site pain [Recovered/Resolved]
  - Blister [Recovering/Resolving]
  - Product quality issue [Unknown]
